FAERS Safety Report 6238828-8 (Version None)
Quarter: 2009Q2

REPORT INFORMATION
  Report Type: 
  Country: None (occurrence: None)
  Receive Date: 20090617
  Receipt Date: 20090617
  Transmission Date: 20091009
  Serious: Yes (Other)
  Sender: FDA-Public Use
  Company Number: None

PATIENT
  Sex: Female
  Weight: 61.2356 kg

DRUGS (2)
  1. ZICAM COLD REMEDY NASAL GEL ZICAM LLC [Suspect]
     Indication: NASOPHARYNGITIS
     Dosage: 1 APPLICATION EACH NOSTRIL 1-3 X D PRN COLD NASAL
     Route: 045
     Dates: start: 20020103, end: 20080122
  2. ZICAM COLD REMEDY NASAL SWAB ZICAM LLC [Suspect]
     Indication: NASOPHARYNGITIS
     Dosage: 1 APPLICATION EACH NOSTRIL 1-3 D PRN COLD NASAL
     Route: 045
     Dates: start: 20040128, end: 20071119

REACTIONS (3)
  - ANOSMIA [None]
  - HYPOSMIA [None]
  - IDIOSYNCRATIC DRUG REACTION [None]
